FAERS Safety Report 5105272-6 (Version None)
Quarter: 2006Q3

REPORT INFORMATION
  Report Type: 
  Country: None (occurrence: None)
  Receive Date: 20060911
  Receipt Date: 20060825
  Transmission Date: 20061208
  Serious: Yes (Hospitalization)
  Sender: FDA-Public Use
  Company Number: 2006-01926

PATIENT
  Age: 69 Year
  Sex: Female
  Weight: 95.5 kg

DRUGS (16)
  1. VELCADE [Suspect]
     Indication: MULTIPLE MYELOMA
     Dosage: 1.00 MG/M2, INTRAVENOUS; 1015 MG/M2, INTRAVENOUS
     Route: 042
     Dates: start: 20060707, end: 20060707
  2. VELCADE [Suspect]
     Indication: MULTIPLE MYELOMA
     Dosage: 1.00 MG/M2, INTRAVENOUS; 1015 MG/M2, INTRAVENOUS
     Route: 042
     Dates: start: 20060710, end: 20060710
  3. SYNTHROID [Concomitant]
  4. DIOVAN [Concomitant]
  5. ALTACE [Concomitant]
  6. CYANOCOBALAMIN [Concomitant]
  7. COUMADIN [Concomitant]
  8. PROTONIX [Concomitant]
  9. MECLIZINE [Concomitant]
  10. THALIDOMIDE [Concomitant]
  11. PAXIL [Concomitant]
  12. DIFLUCAN [Concomitant]
  13. POTASSIUM (POTASSIUM) [Concomitant]
  14. LASIX [Concomitant]
  15. IMODIUM [Concomitant]
  16. DILTIAZEM [Concomitant]

REACTIONS (23)
  - ABDOMINAL DISTENSION [None]
  - ABDOMINAL PAIN [None]
  - AGITATION [None]
  - ARRHYTHMIA [None]
  - BRADYCARDIA [None]
  - CARDIAC FAILURE CONGESTIVE [None]
  - CHRONIC OBSTRUCTIVE PULMONARY DISEASE [None]
  - CONDITION AGGRAVATED [None]
  - CONFUSIONAL STATE [None]
  - ERYTHEMA [None]
  - FLUID RETENTION [None]
  - HYPOAESTHESIA [None]
  - HYPOGLYCAEMIA [None]
  - HYPOKALAEMIA [None]
  - HYPOXIA [None]
  - INSOMNIA [None]
  - NAUSEA [None]
  - OEDEMA PERIPHERAL [None]
  - PLEURAL EFFUSION [None]
  - PLEURITIC PAIN [None]
  - RENAL FAILURE [None]
  - SENSORY LOSS [None]
  - URINARY INCONTINENCE [None]
